FAERS Safety Report 9250291 (Version 1)
Quarter: 2013Q1

REPORT INFORMATION
  Report Type: Spontaneous
  Country: US (occurrence: None)
  Receive Date: 20130305
  Receipt Date: 20130305
  Transmission Date: 20140127
  Serious: Yes (Hospitalization)
  Sender: FDA-Public Use
  Company Number: 163-21880-12061451

PATIENT
  Age: 81 Year
  Sex: Male
  Weight: 84.82 kg

DRUGS (16)
  1. REVLIMID [Suspect]
     Indication: PLASMA CELL MYELOMA
     Dosage: 10 MG, DAYS 1-21 OF 28, PO
     Route: 048
     Dates: start: 20120504, end: 20120526
  2. MELOXICAM (MELOXICAM) (UNKNOWN) [Concomitant]
     Dosage: 15 MG, QD, UNK
  3. METOLAZONE (METOLAZONE) (UNKNOWN) [Concomitant]
     Dosage: 2.5 MG, QD, UNK
  4. ONDANSETRON (ONDANSETRON) (UNKNOWN) [Concomitant]
     Dosage: 8 MG, PRN, UNK
  5. TAMSULOSIN (TAMSULOSIN) (UNKNOWN) [Concomitant]
     Dosage: 0.4 MG, QD, UNK
  6. MIRTAZAPINE (MIRTAZAPINE) (UNKNOWN) [Concomitant]
     Dosage: 30 MG, HS, UNK
  7. TRAMADOL (TRAMADOL) (UNKNOWN) [Concomitant]
     Dosage: 50 MG, Q 12H PRN, UNK
  8. INDOMETHACIN (INDOMETACIN) (UNKNOWN) [Concomitant]
     Dosage: 50 MG, BID, UNK
  9. FUROSEMIDE (FUROSEMIDE) (UNKNOWN) [Concomitant]
     Dosage: 40 MG, BID, UNK
  10. SPIRONALACTONE (SPIRONOLACTONE) (UNKNOWN) [Concomitant]
     Dosage: 200 MG, BID, UNK
  11. ASPIRIN (ACETYLSALICYLIC ACID) (UNKNOWN) (ACETYLSALICYLIC ACID) [Concomitant]
     Dosage: 81 MG, QD, UNK
  12. ESCITALOPRAM (ESCITALOPRAM) (UNKNOWN) [Concomitant]
     Dosage: 10 MG, QD, UNK
  13. PREDNISONE (PREDNISONE) (UNKNOWN) [Concomitant]
     Dosage: 10 MG, QD, UNK
  14. BISACODYL (BISACODYL) (UNKNOWN) [Concomitant]
     Dosage: PRN, UNK
  15. MIRALAX (MACROGOL) (UNKNOWN) [Concomitant]
     Dosage: PRN, UNK
  16. ALLOPURINOL (ALLOPURINOL) (UNKNOWN) [Concomitant]
     Dosage: 200 MG, BID, UNK

REACTIONS (3)
  - Gout [None]
  - Local swelling [None]
  - Rash [None]
